FAERS Safety Report 7043605-4 (Version None)
Quarter: 2010Q4

REPORT INFORMATION
  Report Type: 
  Country: None (occurrence: None)
  Receive Date: 20101013
  Receipt Date: 20101006
  Transmission Date: 20110411
  Serious: Yes (Life-Threatening, Hospitalization, Other)
  Sender: FDA-Public Use
  Company Number: B0598314A

PATIENT
  Age: 16 Day
  Sex: Male
  Weight: 4.2 kg

DRUGS (2)
  1. LAMOTRIGINE [Suspect]
  2. LAMOTRIGINE [Suspect]

REACTIONS (9)
  - APNOEIC ATTACK [None]
  - CYANOSIS [None]
  - DEPRESSED LEVEL OF CONSCIOUSNESS [None]
  - DRUG EXPOSURE DURING PREGNANCY [None]
  - DRUG EXPOSURE VIA BREAST MILK [None]
  - DYSPNOEA [None]
  - PULMONARY VALVE STENOSIS [None]
  - RESPIRATORY DISORDER [None]
  - RESTLESSNESS [None]
